FAERS Safety Report 24402994 (Version 1)
Quarter: 2024Q4

REPORT INFORMATION
  Report Type: Spontaneous
  Country: US (occurrence: US)
  Receive Date: 20241007
  Receipt Date: 20241007
  Transmission Date: 20250114
  Serious: No
  Sender: ROCHE
  Company Number: US-ROCHE-3459509

PATIENT
  Sex: Female
  Weight: 122.47 kg

DRUGS (2)
  1. GAZYVA [Suspect]
     Active Substance: OBINUTUZUMAB
     Indication: Chronic lymphocytic leukaemia
     Dosage: SECOND GAZYVA INFUSION YESTERDAY, 14/NOV/2023
     Route: 042
     Dates: start: 20231113
  2. GAZYVA [Suspect]
     Active Substance: OBINUTUZUMAB
     Route: 042
     Dates: start: 20231114

REACTIONS (7)
  - Infusion related reaction [Recovered/Resolved]
  - Fatigue [Recovered/Resolved]
  - Dizziness [Unknown]
  - Splenomegaly [Unknown]
  - Erythema [Unknown]
  - Dyspnoea [Unknown]
  - Oxygen saturation decreased [Unknown]
